FAERS Safety Report 7163528-X (Version None)
Quarter: 2010Q4

REPORT INFORMATION
  Report Type: 
  Country: None (occurrence: None)
  Receive Date: 20101215
  Receipt Date: 20100504
  Transmission Date: 20110411
  Serious: Yes (Other)
  Sender: FDA-Public Use
  Company Number: US-PFIZER INC-2010045431

PATIENT
  Sex: Male
  Weight: 79.819 kg

DRUGS (4)
  1. LYRICA [Suspect]
     Indication: NEUROPATHY PERIPHERAL
     Dosage: UNK
     Route: 048
     Dates: start: 20090129, end: 20090801
  2. LYRICA [Suspect]
     Dosage: 50 MG, 2X/DAY
     Route: 048
     Dates: start: 20100201, end: 20100201
  3. LYRICA [Suspect]
     Dosage: 100 MG, 2X/DAY
     Route: 048
     Dates: start: 20100201, end: 20100201
  4. OXYCONTIN [Concomitant]
     Indication: PAIN
     Dosage: 20 MG, 2X/DAY
     Route: 048

REACTIONS (6)
  - DRUG INEFFECTIVE [None]
  - DYSKINESIA [None]
  - HALLUCINATION [None]
  - MOVEMENT DISORDER [None]
  - OEDEMA PERIPHERAL [None]
  - SYNCOPE [None]
